FAERS Safety Report 20357080 (Version 22)
Quarter: 2025Q4

REPORT INFORMATION
  Report Type: Report from Study
  Country: CO (occurrence: CO)
  Receive Date: 20220120
  Receipt Date: 20251229
  Transmission Date: 20260118
  Serious: Yes (Other)
  Sender: TAKEDA
  Company Number: CO-TAKEDA-2022TUS003950

PATIENT
  Age: 15 Year
  Sex: Female
  Weight: 50 kg

DRUGS (2)
  1. HUMAN IMMUNOGLOBULIN G\HYALURONIDASE RECOMBINANT HUMAN [Suspect]
     Active Substance: HUMAN IMMUNOGLOBULIN G\HYALURONIDASE (HUMAN RECOMBINANT)
     Indication: Primary immunodeficiency syndrome
     Dosage: 45 GRAM, Q8WEEKS
  2. HUMAN IMMUNOGLOBULIN G\HYALURONIDASE RECOMBINANT HUMAN [Suspect]
     Active Substance: HUMAN IMMUNOGLOBULIN G\HYALURONIDASE (HUMAN RECOMBINANT)
     Dosage: 45 GRAM

REACTIONS (27)
  - COVID-19 [Recovering/Resolving]
  - Influenza [Recovering/Resolving]
  - Weight increased [Unknown]
  - Pain [Unknown]
  - Body height decreased [Unknown]
  - Product prescribing error [Not Recovered/Not Resolved]
  - Treatment noncompliance [Unknown]
  - Weight decreased [Unknown]
  - Incorrect dose administered [Unknown]
  - Ear pain [Not Recovered/Not Resolved]
  - Otitis media acute [Unknown]
  - Body height increased [Unknown]
  - Product availability issue [Unknown]
  - Product dose omission issue [Unknown]
  - Application site erythema [Unknown]
  - Application site pruritus [Unknown]
  - Oropharyngeal pain [Not Recovered/Not Resolved]
  - Malaise [Not Recovered/Not Resolved]
  - Chills [Unknown]
  - Fatigue [Unknown]
  - Headache [Recovered/Resolved]
  - Pyrexia [Recovered/Resolved]
  - Nausea [Recovering/Resolving]
  - Vomiting [Not Recovered/Not Resolved]
  - Infusion site erythema [Recovering/Resolving]
  - Infusion site pruritus [Recovering/Resolving]
  - Inappropriate schedule of product administration [Unknown]

NARRATIVE: CASE EVENT DATE: 20211130
